FAERS Safety Report 4520986-4 (Version None)
Quarter: 2004Q4

REPORT INFORMATION
  Report Type: 
  Country: None (occurrence: None)
  Receive Date: 20041206
  Receipt Date: 20040714
  Transmission Date: 20050328
  Serious: No
  Sender: FDA-Public Use
  Company Number: 8483

PATIENT
  Age: 66 Year
  Sex: Male

DRUGS (4)
  1. LEUCOVORIN [Suspect]
     Indication: GASTRIC CANCER
     Dosage: 120 MG PER_CYCLE IV
     Route: 042
     Dates: start: 20010522
  2. FLUOROURACIL [Suspect]
     Indication: GASTRIC CANCER
     Dosage: 470 MG IV
     Route: 042
     Dates: start: 20010522
  3. CISPLATIN [Suspect]
     Indication: GASTRIC CANCER
     Dosage: 20 MG
     Dates: start: 20010522
  4. METHOTREXATE [Suspect]
     Indication: GASTRIC CANCER
     Dosage: 50 MG PER_CYCLE IV
     Route: 042
     Dates: start: 20010522

REACTIONS (4)
  - GASTRIC CANCER RECURRENT [None]
  - HAEMATOTOXICITY [None]
  - LEUKOPENIA [None]
  - METASTASES TO PERITONEUM [None]
